FAERS Safety Report 17962307 (Version 1)
Quarter: 2020Q2

REPORT INFORMATION
  Report Type: Spontaneous
  Country: US (occurrence: US)
  Receive Date: 20200629
  Receipt Date: 20200629
  Transmission Date: 20200714
  Serious: Yes (Hospitalization)
  Sender: FDA-Public Use
  Company Number: None

PATIENT
  Age: 61 Year
  Sex: Female

DRUGS (1)
  1. EVEROLIMUS 5MG [Suspect]
     Active Substance: EVEROLIMUS
     Indication: BONE CANCER
     Route: 048
     Dates: start: 20200504

REACTIONS (2)
  - Impaired gastric emptying [None]
  - Therapy interrupted [None]

NARRATIVE: CASE EVENT DATE: 20200626
